FAERS Safety Report 5308071-5 (Version None)
Quarter: 2007Q2

REPORT INFORMATION
  Report Type: 
  Country: None (occurrence: None)
  Receive Date: 20070423
  Receipt Date: 20070410
  Transmission Date: 20071010
  Serious: Yes (Hospitalization)
  Sender: FDA-Public Use
  Company Number: 2006BI007023

PATIENT
  Age: 56 Year
  Sex: Female

DRUGS (2)
  1. AVONEX [Suspect]
     Indication: MULTIPLE SCLEROSIS
     Dosage: 30 UG; QW; IM
     Route: 030
     Dates: start: 20030701, end: 20030101
  2. AVONEX [Suspect]
     Indication: MULTIPLE SCLEROSIS
     Dosage: 30 UG; QW; IM
     Route: 030
     Dates: start: 20040901, end: 20070101

REACTIONS (6)
  - ABDOMINAL ABSCESS [None]
  - DIABETES MELLITUS [None]
  - PANCREATITIS [None]
  - POST PROCEDURAL COMPLICATION [None]
  - POST PROCEDURAL INFECTION [None]
  - SPLENECTOMY [None]
